FAERS Safety Report 20741151 (Version 1)
Quarter: 2022Q2

REPORT INFORMATION
  Report Type: Spontaneous
  Country: US (occurrence: US)
  Receive Date: 20220422
  Receipt Date: 20220422
  Transmission Date: 20220720
  Serious: No
  Sender: FDA-Public Use
  Company Number: US-PFIZER INC-202101091100

PATIENT
  Age: 60 Year
  Sex: Male
  Weight: 72.57 kg

DRUGS (10)
  1. CHANTIX [Suspect]
     Active Substance: VARENICLINE TARTRATE
     Indication: Smoking cessation therapy
     Dosage: UNK
  2. CHANTIX [Suspect]
     Active Substance: VARENICLINE TARTRATE
     Dosage: UNK (105MG BY MOUTH ONCE DAILY FOR 3 DAYS, 105MG TABLET TWICE A DAY FOR FOUR DAYS, 1MG TWICE DAILY)
     Route: 048
     Dates: end: 20210822
  3. INTELENCE [Concomitant]
     Active Substance: ETRAVIRINE
     Dosage: 200 MG, 2X/DAY (200MG TABLET, TAKE TWO BY MOUTH DAILY)
     Route: 048
  4. PREZISTA [Concomitant]
     Active Substance: DARUNAVIR ETHANOLATE
     Dosage: 800 MG, DAILY (TAKE ONE BY MOUTH DAILY)
     Route: 048
  5. RITONAVIR [Concomitant]
     Active Substance: RITONAVIR
     Dosage: 100 MG
  6. QUETIAPINE [Concomitant]
     Active Substance: QUETIAPINE
     Indication: Sleep disorder therapy
     Dosage: 25 MG, DAILY (TAKE ONE BY MOUTH AT BEDTIME NIGHTLY)
     Route: 048
  7. QUETIAPINE [Concomitant]
     Active Substance: QUETIAPINE
     Indication: Hallucination, auditory
  8. CETIRIZINE HYDROCHLORIDE [Concomitant]
     Active Substance: CETIRIZINE HYDROCHLORIDE
     Indication: Mental disorder
     Dosage: 10 MG, 1X/DAY
     Route: 048
  9. FLUOXETINE [Concomitant]
     Active Substance: FLUOXETINE HYDROCHLORIDE
     Indication: Mental disorder
     Dosage: 20 MG, DAILY (ONE CAPSULE BY MOUTH DAILY)
     Route: 048
  10. GABAPENTIN [Concomitant]
     Active Substance: GABAPENTIN
     Dosage: 300 MG, 3X/DAY (TAKE ONE CAPSULE BY MOUTH 3 TIMES DAILY)

REACTIONS (6)
  - Dizziness [Not Recovered/Not Resolved]
  - Dyspnoea [Not Recovered/Not Resolved]
  - Vomiting [Not Recovered/Not Resolved]
  - Diarrhoea [Not Recovered/Not Resolved]
  - Hyperhidrosis [Not Recovered/Not Resolved]
  - Recalled product administered [Unknown]

NARRATIVE: CASE EVENT DATE: 20210101
